FAERS Safety Report 13754445 (Version 1)
Quarter: 2017Q3

REPORT INFORMATION
  Report Type: Spontaneous
  Country: US (occurrence: US)
  Receive Date: 20170714
  Receipt Date: 20170714
  Transmission Date: 20171127
  Serious: No
  Sender: FDA-Public Use
  Company Number: None

PATIENT
  Age: 84 Year
  Sex: Male
  Weight: 83.46 kg

DRUGS (6)
  1. BABY ASPIRIN [Concomitant]
     Active Substance: ASPIRIN
  2. CETIRIZINE [Concomitant]
     Active Substance: CETIRIZINE HYDROCHLORIDE
  3. LEVOTHYROXINE. [Concomitant]
     Active Substance: LEVOTHYROXINE
  4. LEVAQUIN [Suspect]
     Active Substance: LEVOFLOXACIN
     Indication: RENAL FAILURE
     Dosage: DOSE - 500 MG PILLS - 4 DAY
     Route: 048
     Dates: start: 20160404, end: 20160413
  5. ATENOLOL. [Concomitant]
     Active Substance: ATENOLOL
  6. NEXIUM [Concomitant]
     Active Substance: ESOMEPRAZOLE MAGNESIUM

REACTIONS (13)
  - Hypoaesthesia [None]
  - Urine odour abnormal [None]
  - Throat irritation [None]
  - Arthralgia [None]
  - Urticaria [None]
  - Peripheral coldness [None]
  - Peripheral swelling [None]
  - Pruritus [None]
  - Chromaturia [None]
  - Joint swelling [None]
  - Pain in extremity [None]
  - Gait disturbance [None]
  - Ligament rupture [None]

NARRATIVE: CASE EVENT DATE: 20160404
